FAERS Safety Report 23493194 (Version 1)
Quarter: 2024Q1

REPORT INFORMATION
  Report Type: Report from Study
  Country: IT (occurrence: IT)
  Receive Date: 20240207
  Receipt Date: 20240207
  Transmission Date: 20240410
  Serious: Yes (Hospitalization)
  Sender: FDA-Public Use
  Company Number: None

PATIENT
  Age: 38 Year
  Sex: Male

DRUGS (2)
  1. IBUPROFEN [Suspect]
     Active Substance: IBUPROFEN
     Indication: Tooth abscess
     Dosage: TIME INTERVAL: TOTAL: UNIT OF MEASUREMENT: MILLIGRAMS
     Route: 048
     Dates: start: 20230830, end: 20230830
  2. AUGMENTIN [Suspect]
     Active Substance: AMOXICILLIN\CLAVULANATE POTASSIUM
     Indication: Tooth abscess
     Dosage: TIME INTERVAL: TOTAL: DOSAGE: 1 UNIT OF MEASUREMENT: GRAMS
     Route: 048
     Dates: start: 20230830, end: 20230830

REACTIONS (1)
  - Rash pruritic [Recovered/Resolved]

NARRATIVE: CASE EVENT DATE: 20230830
